FAERS Safety Report 13700281 (Version 1)
Quarter: 2017Q2

REPORT INFORMATION
  Report Type: Spontaneous
  Country: US (occurrence: US)
  Receive Date: 20170629
  Receipt Date: 20170629
  Transmission Date: 20170830
  Serious: No
  Sender: FDA-Public Use
  Company Number: US-TEVA-782586ACC

PATIENT
  Sex: Female

DRUGS (1)
  1. PLAN B ONE-STEP [Suspect]
     Active Substance: LEVONORGESTREL
     Indication: POST COITAL CONTRACEPTION
     Dates: start: 20170604, end: 20170604

REACTIONS (6)
  - Secretion discharge [Unknown]
  - Abdominal pain [Unknown]
  - Intentional product misuse [Unknown]
  - Vaginal haemorrhage [Unknown]
  - Breast tenderness [Unknown]
  - Back pain [Unknown]

NARRATIVE: CASE EVENT DATE: 20170604
